FAERS Safety Report 6425863-X (Version None)
Quarter: 2009Q4

REPORT INFORMATION
  Report Type: 
  Country: None (occurrence: None)
  Receive Date: 20091103
  Receipt Date: 20090909
  Transmission Date: 20100525
  Serious: No
  Sender: FDA-Public Use
  Company Number: US-ABBOTT-09P-163-0598034-00

PATIENT
  Sex: Male
  Weight: 156.63 kg

DRUGS (1)
  1. BIAXIN [Suspect]
     Indication: BRONCHITIS

REACTIONS (1)
  - VENTRICULAR TACHYCARDIA [None]
